FAERS Safety Report 5724053-3 (Version None)
Quarter: 2008Q2

REPORT INFORMATION
  Report Type: 
  Country: None (occurrence: None)
  Receive Date: 20080430
  Receipt Date: 20080403
  Transmission Date: 20081010
  Serious: No
  Sender: FDA-Public Use
  Company Number: US-BOEHRINGER INGELHEIM GMBH, GERMANY-2008-BP-05292BP

PATIENT
  Sex: Female

DRUGS (4)
  1. MICARDIS HCT [Suspect]
     Indication: HYPERTENSION
     Route: 048
     Dates: start: 20080331, end: 20080402
  2. AMLODIPINE/VALSARTAN [Concomitant]
     Route: 048
     Dates: end: 20080330
  3. BACTRIM [Concomitant]
     Indication: STAPHYLOCOCCAL INFECTION
  4. MUTIPLE ANTIBIOTICS [Concomitant]
     Indication: STAPHYLOCOCCAL INFECTION

REACTIONS (1)
  - RASH [None]
